FAERS Safety Report 19203278 (Version 1)
Quarter: 2021Q2

REPORT INFORMATION
  Report Type: Spontaneous
  Country: JP (occurrence: JP)
  Receive Date: 20210430
  Receipt Date: 20210430
  Transmission Date: 20210717
  Serious: Yes (Other)
  Sender: FDA-Public Use
  Company Number: JP-ASTRAZENECA-2021A354120

PATIENT
  Age: 38 Year
  Sex: Male

DRUGS (1)
  1. OSIMERTINIB. [Suspect]
     Active Substance: OSIMERTINIB
     Indication: LUNG ADENOCARCINOMA
     Dosage: 80.0MG UNKNOWN
     Route: 048

REACTIONS (5)
  - Drug resistance [Unknown]
  - EGFR gene mutation [Recovered/Resolved]
  - TP53 gene mutation [Recovered/Resolved]
  - Treatment failure [Unknown]
  - Malignant neoplasm progression [Unknown]
